FAERS Safety Report 20513060 (Version 1)
Quarter: 2022Q1

REPORT INFORMATION
  Report Type: Spontaneous
  Country: US (occurrence: US)
  Receive Date: 20220224
  Receipt Date: 20220224
  Transmission Date: 20220423
  Serious: No
  Sender: FDA-Public Use
  Company Number: US-AMNEAL PHARMACEUTICALS-2021-AMRX-00641

PATIENT
  Sex: Male
  Weight: 88 kg

DRUGS (10)
  1. RYTARY [Suspect]
     Active Substance: CARBIDOPA\LEVODOPA
     Indication: Parkinson^s disease
     Dosage: UNK
     Route: 065
  2. GOCOVRI [Suspect]
     Active Substance: AMANTADINE
     Indication: Dyskinesia
     Dosage: 137 MILLIGRAM, 1 /DAY, AT BEDTIME
     Route: 048
     Dates: start: 20201201, end: 20201207
  3. GOCOVRI [Suspect]
     Active Substance: AMANTADINE
     Dosage: 274 MILLIGRAM, 1 /DAY, AT BEDTIME
     Route: 048
     Dates: start: 20201208, end: 20210109
  4. GOCOVRI [Suspect]
     Active Substance: AMANTADINE
     Dosage: 137 MILLIGRAM, 1 /DAY, AT BEDTIME
     Route: 048
     Dates: start: 20210110, end: 20210116
  5. GOCOVRI [Suspect]
     Active Substance: AMANTADINE
     Dosage: 68.5 MILLIGRAM, 1 /DAY, AT BEDTIME
     Route: 048
     Dates: start: 20210117, end: 202101
  6. CARBIDOPA AND LEVODOPA [Concomitant]
     Active Substance: CARBIDOPA\LEVODOPA
     Indication: Parkinson^s disease
     Dosage: UNK
     Route: 065
     Dates: start: 20210119
  7. LISINOPRIL [Concomitant]
     Active Substance: LISINOPRIL
     Indication: Product used for unknown indication
     Dosage: UNK
     Route: 065
  8. SELEGILINE [Concomitant]
     Active Substance: SELEGILINE
     Indication: Product used for unknown indication
     Dosage: UNK
     Route: 065
  9. TAMSULOSIN [Concomitant]
     Active Substance: TAMSULOSIN
     Indication: Product used for unknown indication
     Dosage: UNK
     Route: 065
  10. ESOMEPRAZOLE MAGNESIUM [Concomitant]
     Active Substance: ESOMEPRAZOLE MAGNESIUM
     Indication: Product used for unknown indication
     Dosage: UNK
     Route: 065

REACTIONS (3)
  - Movement disorder [Not Recovered/Not Resolved]
  - Aphasia [Not Recovered/Not Resolved]
  - Gait inability [Not Recovered/Not Resolved]

NARRATIVE: CASE EVENT DATE: 20200101
